FAERS Safety Report 4652576-7 (Version None)
Quarter: 2005Q2

REPORT INFORMATION
  Report Type: 
  Country: None (occurrence: None)
  Receive Date: 20050504
  Receipt Date: 20050425
  Transmission Date: 20051028
  Serious: Yes (Hospitalization, Disabling)
  Sender: FDA-Public Use
  Company Number: NSADSS2002013269

PATIENT
  Sex: Male

DRUGS (4)
  1. DURAGESIC-100 [Suspect]
     Route: 062
     Dates: start: 20010829, end: 20011101
  2. LORAZEPAM [Concomitant]
     Indication: INSOMNIA
     Route: 049
  3. ANTI-DEPRESSANT, NOS [Concomitant]
     Route: 049
  4. STADOL [Concomitant]
     Indication: HEADACHE

REACTIONS (6)
  - DYSURIA [None]
  - ERECTILE DYSFUNCTION [None]
  - IMPLANT EXPULSION [None]
  - LIBIDO DECREASED [None]
  - PENILE PROSTHESIS INSERTION [None]
  - URINARY RETENTION [None]
